FAERS Safety Report 8476442-4 (Version None)
Quarter: 2012Q2

REPORT INFORMATION
  Report Type: 
  Country: None (occurrence: None)
  Receive Date: 20120628
  Receipt Date: 20120606
  Transmission Date: 20120825
  Serious: Yes (Other)
  Sender: FDA-Public Use
  Company Number: CA-ELI_LILLY_AND_COMPANY-CA201206002575

PATIENT
  Age: 70 Year
  Sex: Male

DRUGS (4)
  1. ANTIHYPERTENSIVES [Concomitant]
  2. EFFIENT [Suspect]
     Indication: STENT PLACEMENT
     Dosage: 10 MG, UNK
  3. OTHER LIPID MODIFYING AGENTS [Concomitant]
  4. ASPIRIN [Concomitant]

REACTIONS (1)
  - DEVICE OCCLUSION [None]
